FAERS Safety Report 22055916 (Version 2)
Quarter: 2023Q1

REPORT INFORMATION
  Report Type: Report from Study
  Country: GB (occurrence: GB)
  Receive Date: 20230302
  Receipt Date: 20230303
  Transmission Date: 20230418
  Serious: Yes (Hospitalization)
  Sender: FDA-Public Use
  Company Number: GB-009507513-2202GBR001939

PATIENT
  Age: 54 Year
  Sex: Female
  Weight: 57.2 kg

DRUGS (3)
  1. BELZUTIFAN [Suspect]
     Active Substance: BELZUTIFAN
     Indication: Phaeochromocytoma
     Dosage: 120 MILLIGRAM, QD
     Route: 048
     Dates: start: 20211217, end: 20211230
  2. BELZUTIFAN [Suspect]
     Active Substance: BELZUTIFAN
     Dosage: 120 MILLIGRAM, QD
     Route: 048
     Dates: start: 20211231, end: 20220225
  3. PHENOXYBENZAMINE HYDROCHLORIDE [Concomitant]
     Active Substance: PHENOXYBENZAMINE HYDROCHLORIDE
     Indication: Essential hypertension
     Dosage: 10 MILLIGRAM, BID
     Route: 048
     Dates: start: 20211027

REACTIONS (2)
  - Epistaxis [Recovered/Resolved]
  - Anaemia [Not Recovered/Not Resolved]

NARRATIVE: CASE EVENT DATE: 20211229
